FAERS Safety Report 10460355 (Version 1)
Quarter: 2014Q3

REPORT INFORMATION
  Report Type: Spontaneous
  Country: US (occurrence: US)
  Receive Date: 20140917
  Receipt Date: 20140917
  Transmission Date: 20150326
  Serious: No
  Sender: FDA-Public Use
  Company Number: US-ASTRAZENECA-2013SE93501

PATIENT
  Age: 42 Year
  Sex: Female

DRUGS (20)
  1. VITAMIN D3 [Concomitant]
     Active Substance: CHOLECALCIFEROL
  2. CORICIDIN [Concomitant]
     Active Substance: ACETAMINOPHEN\CHLORPHENIRAMINE MALEATE
  3. LYRICA [Concomitant]
     Active Substance: PREGABALIN
  4. LIPITOR [Concomitant]
     Active Substance: ATORVASTATIN CALCIUM
  5. TIZANIDINE [Concomitant]
     Active Substance: TIZANIDINE
  6. NEURONTIN [Concomitant]
     Active Substance: GABAPENTIN
  7. NORVASC [Concomitant]
     Active Substance: AMLODIPINE BESYLATE
  8. VYTORIN [Concomitant]
     Active Substance: EZETIMIBE\SIMVASTATIN
  9. LOSARTAN POTASSIUM. [Concomitant]
     Active Substance: LOSARTAN POTASSIUM
  10. HYDROCODONE ACETAMINOPHEN [Concomitant]
     Active Substance: ACETAMINOPHEN\HYDROCODONE BITARTRATE
  11. KEFLEX [Concomitant]
     Active Substance: CEPHALEXIN
  12. KLONOPIN [Concomitant]
     Active Substance: CLONAZEPAM
  13. CYMBALTA [Concomitant]
     Active Substance: DULOXETINE HYDROCHLORIDE
  14. HYDROCHLOROTHIAZIDE. [Concomitant]
     Active Substance: HYDROCHLOROTHIAZIDE
  15. ZESTRIL [Suspect]
     Active Substance: LISINOPRIL
     Route: 048
  16. POTASSIUM CHLORIDE. [Concomitant]
     Active Substance: POTASSIUM CHLORIDE
  17. ELAVIL [Concomitant]
     Active Substance: AMITRIPTYLINE HYDROCHLORIDE
  18. FAMOTIDINE. [Concomitant]
     Active Substance: FAMOTIDINE
  19. CLARITIN [Concomitant]
     Active Substance: LORATADINE
  20. MULTIVITAMINS [Concomitant]
     Active Substance: VITAMINS

REACTIONS (7)
  - Hyperlipidaemia [Unknown]
  - Cough [Unknown]
  - Diabetes mellitus [Unknown]
  - Anxiety [Unknown]
  - Hypertension [Unknown]
  - Neuropathy peripheral [Unknown]
  - Depression [Unknown]
